FAERS Safety Report 14317788 (Version 1)
Quarter: 2017Q4

REPORT INFORMATION
  Report Type: Report from Study
  Country: GB (occurrence: GB)
  Receive Date: 20171222
  Receipt Date: 20171222
  Transmission Date: 20180321
  Serious: Yes (Other)
  Sender: FDA-Public Use
  Company Number: GB-CIPLA LTD.-2017GB25285

PATIENT

DRUGS (3)
  1. METHOTREXATE. [Suspect]
     Active Substance: METHOTREXATE
     Indication: RHEUMATOID ARTHRITIS
     Dosage: 10 TO 25 MG PER WEEK
     Route: 065
  2. FOLIC ACID. [Suspect]
     Active Substance: FOLIC ACID
     Indication: RHEUMATOID ARTHRITIS
     Dosage: 5 TO 10 MG/WEEK
     Route: 065
  3. SB497115 [Suspect]
     Active Substance: ELTROMBOPAG
     Indication: RHEUMATOID ARTHRITIS
     Dosage: 50 MG PER WEEK
     Route: 058

REACTIONS (1)
  - Neutralising antibodies positive [Unknown]
